FAERS Safety Report 11930814 (Version 1)
Quarter: 2016Q1

REPORT INFORMATION
  Report Type: Spontaneous
  Country: CA (occurrence: None)
  Receive Date: 20160120
  Receipt Date: 20160120
  Transmission Date: 20160526
  Serious: Yes (Hospitalization)
  Sender: FDA-Public Use
  Company Number: None

PATIENT
  Age: 3 Year
  Sex: Male
  Weight: 15.8 kg

DRUGS (5)
  1. DEXAMETHASONE. [Suspect]
     Active Substance: DEXAMETHASONE
     Dates: end: 20160106
  2. METHOTREXATE [Suspect]
     Active Substance: METHOTREXATE
     Dates: end: 20160106
  3. VINCRISTINE SULFATE. [Concomitant]
     Active Substance: VINCRISTINE SULFATE
     Dates: end: 20151230
  4. CYTARABINE. [Suspect]
     Active Substance: CYTARABINE
     Dates: end: 20151207
  5. ONCASPAR [Suspect]
     Active Substance: PEGASPARGASE
     Dates: end: 20151212

REACTIONS (4)
  - Hyperglycaemia [None]
  - Febrile neutropenia [None]
  - Stomatitis [None]
  - Hypertension [None]

NARRATIVE: CASE EVENT DATE: 20151211
